FAERS Safety Report 22214541 (Version 1)
Quarter: 2023Q2

REPORT INFORMATION
  Report Type: Spontaneous
  Country: US (occurrence: US)
  Receive Date: 20230415
  Receipt Date: 20230415
  Transmission Date: 20230722
  Serious: No
  Sender: FDA-Public Use
  Company Number: US-drreddys-SPO/USA/23/0162949

PATIENT
  Age: 20 Year

DRUGS (2)
  1. ACCUTANE [Suspect]
     Active Substance: ISOTRETINOIN
     Indication: Product used for unknown indication
     Dosage: RMA ISSUE DATE: 11 NOVEMBER 2022 05:49:05 PM, 20 DECEMBER 2022 04:24:24 PM, 20 JANUARY 2023 12:50:01
  2. ACCUTANE [Suspect]
     Active Substance: ISOTRETINOIN
     Dosage: RMA ISSUE DATE: 10 OCTOBER 2022 11:15:41 AM

REACTIONS (1)
  - Treatment noncompliance [Unknown]
